FAERS Safety Report 9274539 (Version 2)
Quarter: 2013Q2

REPORT INFORMATION
  Report Type: Spontaneous
  Country: US (occurrence: US)
  Receive Date: 20130507
  Receipt Date: 20130628
  Transmission Date: 20140414
  Serious: No
  Sender: FDA-Public Use
  Company Number: US-009507513-1305USA001887

PATIENT
  Age: 37 Year
  Sex: Female
  Weight: 79.37 kg

DRUGS (3)
  1. SAPHRIS [Suspect]
     Indication: BIPOLAR DISORDER
     Dosage: 10 MG, QD
     Route: 048
     Dates: start: 20130416, end: 20130501
  2. LAMICTAL [Concomitant]
  3. SERTRALINE HYDROCHLORIDE [Suspect]

REACTIONS (1)
  - Galactorrhoea [Recovered/Resolved]
